FAERS Safety Report 6819467-4 (Version None)
Quarter: 2010Q3

REPORT INFORMATION
  Report Type: 
  Country: None (occurrence: None)
  Receive Date: 20100707
  Receipt Date: 20100701
  Transmission Date: 20110219
  Serious: Yes (Hospitalization)
  Sender: FDA-Public Use
  Company Number: US-PERRIGO-10US010947

PATIENT
  Age: 60 Year
  Sex: Male

DRUGS (1)
  1. ACETAMINOPHEN-ASPIRIN-CAFFEINE 374 [Suspect]
     Indication: COUGH
     Dosage: 6 TO 8 TABLETS QD
     Route: 048

REACTIONS (7)
  - ABDOMINAL PAIN [None]
  - COAGULOPATHY [None]
  - HAEMATOCRIT DECREASED [None]
  - MUSCLE HAEMORRHAGE [None]
  - OVERDOSE [None]
  - PNEUMONIA [None]
  - SELF-MEDICATION [None]
